FAERS Safety Report 26022858 (Version 1)
Quarter: 2025Q4

REPORT INFORMATION
  Report Type: Spontaneous
  Country: US (occurrence: US)
  Receive Date: 20251110
  Receipt Date: 20251110
  Transmission Date: 20260118
  Serious: Yes (Other)
  Sender: INCYTE
  Company Number: US-INCYTE CORPORATION-2025IN012235

PATIENT
  Age: 77 Year

DRUGS (1)
  1. JAKAFI [Suspect]
     Active Substance: RUXOLITINIB
     Indication: Lymphatic system neoplasm
     Dosage: 10 MILLIGRAM, BID

REACTIONS (2)
  - Cataract [Unknown]
  - Off label use [Unknown]
